FAERS Safety Report 9106764 (Version 1)
Quarter: 2013Q1

REPORT INFORMATION
  Report Type: Spontaneous
  Country: US (occurrence: US)
  Receive Date: 20130222
  Receipt Date: 20130222
  Transmission Date: 20140127
  Serious: Yes (Other)
  Sender: FDA-Public Use
  Company Number: US-UCBSA-077392

PATIENT
  Age: 57 Year
  Sex: Female

DRUGS (8)
  1. LEVETIRACETAM [Suspect]
     Indication: EPILEPSY
  2. LEVETIRACETAM [Suspect]
     Indication: STATUS EPILEPTICUS
  3. MIDAZOLAM [Suspect]
     Indication: EPILEPSY
     Dosage: 10 MG/HR
  4. MIDAZOLAM [Suspect]
     Indication: STATUS EPILEPTICUS
     Dosage: 10 MG/HR
  5. VALPROIC ACID [Suspect]
     Indication: EPILEPSY
  6. VALPROIC ACID [Suspect]
     Indication: STATUS EPILEPTICUS
  7. PHT [Suspect]
     Indication: EPILEPSY
  8. PHT [Suspect]
     Indication: STATUS EPILEPTICUS

REACTIONS (1)
  - Electroencephalogram abnormal [Unknown]
